FAERS Safety Report 9789384 (Version 3)
Quarter: 2014Q1

REPORT INFORMATION
  Report Type: Report from Study
  Country: JP (occurrence: JP)
  Receive Date: 20131231
  Receipt Date: 20140328
  Transmission Date: 20141002
  Serious: Yes (Other)
  Sender: FDA-Public Use
  Company Number: JP-AMGEN-JPNCT2013090705

PATIENT
  Age: 82 Year
  Sex: Male
  Weight: 52 kg

DRUGS (14)
  1. DARBEPOETIN ALFA [Suspect]
     Indication: NEPHROGENIC ANAEMIA
     Dosage: 60 MUG, Q3WK
     Route: 058
     Dates: start: 20111006
  2. ISCOTIN [Concomitant]
     Indication: GLOMERULONEPHRITIS CHRONIC
     Dosage: UNK
     Route: 048
  3. NU-LOTAN [Concomitant]
     Dosage: UNK
     Route: 048
  4. ALOSITOL [Concomitant]
     Dosage: UNK
     Route: 048
  5. TAKEPRON [Concomitant]
     Dosage: UNK
     Route: 048
  6. CASODEX [Concomitant]
     Indication: GLOMERULONEPHRITIS CHRONIC
     Dosage: UNK
     Route: 048
  7. ALLOZYM [Concomitant]
     Dosage: UNK
     Route: 048
  8. BAYASPIRIN [Concomitant]
     Dosage: UNK
     Route: 048
  9. CRESTOR [Concomitant]
     Dosage: UNK
     Route: 048
  10. PYDOXAL [Concomitant]
     Indication: GLOMERULONEPHRITIS CHRONIC
     Dosage: UNK
     Route: 048
  11. GLOVENIN I [Concomitant]
     Indication: GLOMERULONEPHRITIS CHRONIC
     Dosage: UNK
     Route: 065
  12. SODIUM BICARBONATE [Concomitant]
     Dosage: UNK
     Route: 048
  13. HARNAL [Concomitant]
     Indication: GLOMERULONEPHRITIS CHRONIC
     Dosage: UNK
     Route: 048
  14. BLADDERON [Concomitant]
     Indication: GLOMERULONEPHRITIS CHRONIC
     Route: 048

REACTIONS (3)
  - Immune thrombocytopenic purpura [Recovered/Resolved]
  - Angina pectoris [Not Recovered/Not Resolved]
  - Prostate cancer recurrent [Not Recovered/Not Resolved]
